FAERS Safety Report 9753373 (Version 2)
Quarter: 2013Q4

REPORT INFORMATION
  Report Type: Spontaneous
  Country: US (occurrence: US)
  Receive Date: 20131213
  Receipt Date: 20131216
  Transmission Date: 20140711
  Serious: No
  Sender: FDA-Public Use
  Company Number: US-TEVA-406175USA

PATIENT
  Age: 37 Year
  Sex: Female

DRUGS (2)
  1. PARAGARD 380A [Suspect]
     Indication: CONTRACEPTION
     Route: 015
     Dates: end: 20130429
  2. GEODON [Concomitant]

REACTIONS (2)
  - Device expulsion [Recovered/Resolved]
  - Abdominal pain lower [Recovered/Resolved]
